FAERS Safety Report 8699105 (Version 2)
Quarter: 2012Q4

REPORT INFORMATION
  Report Type: 
  Country: US (occurrence: US)
  Receive Date: 20120802
  Receipt Date: 20121023
  Transmission Date: 20130627
  Serious: No
  Sender: FDA-Public Use
  Company Number: US-ASTRAZENECA-2012SE51601

PATIENT
  Age: 63 Year
  Sex: Female

DRUGS (2)
  1. ARIMIDEX [Suspect]
     Route: 048
  2. CHEMOTHERAPY [Suspect]
     Route: 065

REACTIONS (4)
  - Cognitive disorder [Unknown]
  - Amnesia [Unknown]
  - Confusional state [Unknown]
  - Drug withdrawal syndrome [Unknown]
